FAERS Safety Report 13475369 (Version 2)
Quarter: 2017Q3

REPORT INFORMATION
  Report Type: Report from Study
  Country: US (occurrence: US)
  Receive Date: 20170424
  Receipt Date: 20170802
  Transmission Date: 20171127
  Serious: No
  Sender: FDA-Public Use
  Company Number: US-AMGEN-USASL2017059729

PATIENT
  Age: 73 Year
  Sex: Male

DRUGS (1)
  1. REPATHA [Suspect]
     Active Substance: EVOLOCUMAB
     Indication: HYPERCHOLESTEROLAEMIA
     Dosage: UNK, Q2WK
     Route: 065
     Dates: start: 20170201, end: 201704

REACTIONS (6)
  - Eyelid pain [Unknown]
  - Influenza [Unknown]
  - Ocular hyperaemia [Unknown]
  - Eye swelling [Unknown]
  - Intentional product misuse [Unknown]
  - Malaise [Recovered/Resolved]
